FAERS Safety Report 12995431 (Version 1)
Quarter: 2016Q4

REPORT INFORMATION
  Report Type: Spontaneous
  Country: US (occurrence: US)
  Receive Date: 20161202
  Receipt Date: 20161202
  Transmission Date: 20170207
  Serious: No
  Sender: FDA-Public Use
  Company Number: US-BAYER-2016-223864

PATIENT
  Age: 14 Year
  Sex: Female

DRUGS (3)
  1. AMIKACIN [Concomitant]
     Active Substance: AMIKACIN
     Dosage: UNK
  2. PIPERACILLIN AND TAZOBACTAM [Concomitant]
     Active Substance: PIPERACILLIN SODIUM\TAZOBACTAM SODIUM
     Dosage: 2400 MG, UNK
  3. CIPROFLOXACIN. [Suspect]
     Active Substance: CIPROFLOXACIN
     Dosage: (30 MG/KG/DAY)
     Route: 042

REACTIONS (2)
  - Drug ineffective [None]
  - Incorrect drug administration duration [None]
